FAERS Safety Report 20455251 (Version 2)
Quarter: 2022Q2

REPORT INFORMATION
  Report Type: Spontaneous
  Country: JP (occurrence: JP)
  Receive Date: 20220210
  Receipt Date: 20220410
  Transmission Date: 20220720
  Serious: Yes (Other)
  Sender: FDA-Public Use
  Company Number: JP-TAKEDA-2022TJP017665

PATIENT
  Age: 9 Decade
  Sex: Male

DRUGS (3)
  1. AGRYLIN [Suspect]
     Active Substance: ANAGRELIDE HYDROCHLORIDE
     Indication: Essential thrombocythaemia
     Dosage: 1.0 MILLIGRAM, BID
     Route: 048
  2. AGRYLIN [Suspect]
     Active Substance: ANAGRELIDE HYDROCHLORIDE
     Dosage: 1.5 MILLIGRAM DAILY (1MG IN THE MORNING, 0.5MG IN THE EVENING)
     Route: 048
  3. HYDREA [Concomitant]
     Active Substance: HYDROXYUREA
     Indication: Essential thrombocythaemia
     Route: 065

REACTIONS (2)
  - Cerebral infarction [Recovered/Resolved]
  - Hepatic function abnormal [Recovered/Resolved]
